FAERS Safety Report 8150728-5 (Version None)
Quarter: 2012Q1

REPORT INFORMATION
  Report Type: 
  Country: None (occurrence: None)
  Receive Date: 20120220
  Receipt Date: 20120214
  Transmission Date: 20120608
  Serious: Yes (Hospitalization, Other)
  Sender: FDA-Public Use
  Company Number: US-AMGEN-USASP2012010066

PATIENT
  Age: 55 Year
  Sex: Female
  Weight: 44.9 kg

DRUGS (1)
  1. PROCRIT [Suspect]
     Indication: DIALYSIS
     Dosage: UNK

REACTIONS (3)
  - ACUTE PULMONARY OEDEMA [None]
  - HAEMOGLOBIN DECREASED [None]
  - CHEST PAIN [None]
